FAERS Safety Report 23668376 (Version 1)
Quarter: 2024Q1

REPORT INFORMATION
  Report Type: Spontaneous
  Country: US (occurrence: None)
  Receive Date: 20240323
  Receipt Date: 20240323
  Transmission Date: 20240410
  Serious: No
  Sender: FDA-Public Use
  Company Number: None

PATIENT
  Age: 53 Year
  Sex: Female
  Weight: 54.9 kg

DRUGS (6)
  1. BIMATOPROST [Suspect]
     Active Substance: BIMATOPROST
     Indication: Dry eye
     Dosage: 1 DROP AT BEDTIME OPHTHALMIC
     Route: 047
     Dates: start: 20240316, end: 20240323
  2. SIMVASTATIN [Concomitant]
     Active Substance: SIMVASTATIN
  3. LISINOPRIL [Concomitant]
     Active Substance: LISINOPRIL
  4. LEVOTHYROXINE [Concomitant]
     Active Substance: LEVOTHYROXINE\LEVOTHYROXINE SODIUM
  5. TRULANCE [Concomitant]
     Active Substance: PLECANATIDE
  6. ASPIRIN [Concomitant]
     Active Substance: ASPIRIN

REACTIONS (2)
  - Headache [None]
  - Photosensitivity reaction [None]

NARRATIVE: CASE EVENT DATE: 20240316
